FAERS Safety Report 19473115 (Version 4)
Quarter: 2022Q4

REPORT INFORMATION
  Report Type: Spontaneous
  Country: CA (occurrence: CA)
  Receive Date: 20210629
  Receipt Date: 20221026
  Transmission Date: 20230113
  Serious: Yes (Hospitalization, Other)
  Sender: FDA-Public Use
  Company Number: CA-SAMSUNG BIOEPIS-SB-2021-15332

PATIENT
  Age: 25 Year
  Sex: Female
  Weight: 68 kg

DRUGS (7)
  1. INFLIXIMAB [Suspect]
     Active Substance: INFLIXIMAB
     Indication: Colitis ulcerative
     Route: 042
  2. ACETAMINOPHEN [Concomitant]
     Active Substance: ACETAMINOPHEN
     Indication: Premedication
     Route: 065
  3. ASACOL [Concomitant]
     Active Substance: MESALAMINE
     Indication: Product used for unknown indication
     Dosage: ENTERIC COATED
     Route: 048
  4. ASACOL [Concomitant]
     Active Substance: MESALAMINE
     Dosage: THREE EVERY ONE DAY
     Route: 048
  5. PENTASA [Concomitant]
     Active Substance: MESALAMINE
     Indication: Product used for unknown indication
     Route: 065
  6. WELLBUTRIN [Concomitant]
     Active Substance: BUPROPION HYDROCHLORIDE
     Indication: Product used for unknown indication
     Dosage: EXTENDED RELEASE
     Route: 065
  7. GRAMICIDIN\POLYMYXIN B [Concomitant]
     Active Substance: GRAMICIDIN\POLYMYXIN B
     Indication: Product used for unknown indication
     Route: 061

REACTIONS (17)
  - Blood pressure diastolic decreased [Recovered/Resolved]
  - Breast fibrosis [Recovered/Resolved]
  - COVID-19 [Recovered/Resolved]
  - Condition aggravated [Recovered/Resolved]
  - Headache [Recovered/Resolved]
  - Malaise [Recovered/Resolved]
  - Musculoskeletal chest pain [Recovered/Resolved]
  - Omphalitis [Recovered/Resolved]
  - Skin lesion [Recovered/Resolved]
  - Uterine haemorrhage [Recovered/Resolved]
  - Wound infection bacterial [Recovered/Resolved]
  - Road traffic accident [Recovered/Resolved]
  - Drug intolerance [Recovered/Resolved]
  - Drug level decreased [Recovered/Resolved]
  - Intentional product use issue [Recovered/Resolved]
  - Off label use [Recovered/Resolved]
  - Inappropriate schedule of product administration [Recovered/Resolved]
